FAERS Safety Report 16869024 (Version 1)
Quarter: 2019Q3

REPORT INFORMATION
  Report Type: Spontaneous
  Country: CN (occurrence: CN)
  Receive Date: 20190930
  Receipt Date: 20190930
  Transmission Date: 20191005
  Serious: Yes (Other)
  Sender: FDA-Public Use
  Company Number: CN-PFIZER INC-2019419552

PATIENT
  Age: 50 Year
  Sex: Female
  Weight: 37 kg

DRUGS (2)
  1. ZITHROMAX [Suspect]
     Active Substance: AZITHROMYCIN DIHYDRATE
     Indication: INFECTION
     Dosage: 500 MG, 1X/DAY
     Route: 041
     Dates: start: 20190915, end: 20190915
  2. LENTINAN [Suspect]
     Active Substance: LENTINAN
     Indication: PROBIOTIC THERAPY
     Dosage: 2 MG, 1X/DAY
     Route: 041
     Dates: start: 20190915, end: 20190915

REACTIONS (3)
  - Temperature intolerance [Recovering/Resolving]
  - Hypersensitivity [Recovering/Resolving]
  - Tremor [Recovering/Resolving]

NARRATIVE: CASE EVENT DATE: 20190915
